FAERS Safety Report 15773855 (Version 2)
Quarter: 2020Q4

REPORT INFORMATION
  Report Type: Spontaneous
  Country: DE (occurrence: DE)
  Receive Date: 20181229
  Receipt Date: 20201006
  Transmission Date: 20210113
  Serious: Yes (Hospitalization, Other)
  Sender: FDA-Public Use
  Company Number: DE-AUROBINDO-AUR-APL-2018-063436

PATIENT
  Age: 52 Year
  Sex: Female

DRUGS (3)
  1. TENOFOVIR [Concomitant]
     Active Substance: TENOFOVIR
     Indication: HIV INFECTION
     Dosage: UNK
     Route: 065
  2. EFAVIRENZ. [Suspect]
     Active Substance: EFAVIRENZ
     Indication: HIV INFECTION
     Dosage: UNK
     Route: 065
  3. EMTRICITABINE [Concomitant]
     Active Substance: EMTRICITABINE
     Indication: HIV INFECTION
     Dosage: UNK
     Route: 065

REACTIONS (13)
  - Hallucinations, mixed [Recovered/Resolved]
  - Irritability [Recovered/Resolved]
  - Tension [Recovered/Resolved]
  - Cognitive disorder [Not Recovered/Not Resolved]
  - Psychomotor hyperactivity [Recovered/Resolved]
  - Acute psychosis [Unknown]
  - Personality change [Recovered/Resolved]
  - Depressed mood [Recovered/Resolved]
  - Delusion [Recovered/Resolved]
  - Memory impairment [Recovered/Resolved]
  - Disturbance in attention [Recovered/Resolved]
  - Abnormal behaviour [Recovered/Resolved]
  - Impulse-control disorder [Recovered/Resolved]
